FAERS Safety Report 13775455 (Version 11)
Quarter: 2023Q1

REPORT INFORMATION
  Report Type: Spontaneous
  Country: FR (occurrence: FR)
  Receive Date: 20170720
  Receipt Date: 20230327
  Transmission Date: 20230418
  Serious: Yes (Hospitalization, Other)
  Sender: FDA-Public Use
  Company Number: FR-009507513-1707FRA007393

PATIENT
  Age: 43 Year
  Sex: Male

DRUGS (50)
  1. CANCIDAS [Suspect]
     Active Substance: CASPOFUNGIN ACETATE
     Indication: Fungal infection
     Dosage: 70 MILLIGRAM, QD
     Route: 042
     Dates: start: 201703, end: 2017
  2. CILASTATIN SODIUM\IMIPENEM [Suspect]
     Active Substance: CILASTATIN SODIUM\IMIPENEM
     Indication: Product used for unknown indication
     Dosage: 500 MILLIGRAM, TID (ALSO REPORTED AS Q8H)
     Route: 042
     Dates: start: 201703, end: 20170403
  3. ZERBAXA [Suspect]
     Active Substance: CEFTOLOZANE SULFATE\TAZOBACTAM SODIUM
     Indication: Cellulitis
     Dosage: 3 GRAM, TID
     Route: 042
     Dates: start: 20170331
  4. CELLCEPT [Suspect]
     Active Substance: MYCOPHENOLATE MOFETIL
     Indication: Prophylaxis against transplant rejection
     Dosage: 1000 MG, BID
     Route: 048
  5. CELLCEPT [Suspect]
     Active Substance: MYCOPHENOLATE MOFETIL
     Dosage: 1000 MG, BID, 1000 MG, 2X/DAY(ONE TABLET ONCE IN THE MORNING AND ONCE IN THE EVENING)
     Route: 048
     Dates: start: 2017
  6. PHLOROGLUCINOL [Suspect]
     Active Substance: PHLOROGLUCINOL
     Indication: Abdominal pain
     Dosage: 2 DF, AS NEEDED (TWO TABLETS THREE TIMES DAILY IF ABDOMINAL PAIN)
     Route: 048
     Dates: start: 2017
  7. PHLOROGLUCINOL [Suspect]
     Active Substance: PHLOROGLUCINOL
     Indication: Pain
     Dosage: 2 DOSAGE FORM, QD
     Route: 048
     Dates: start: 2017, end: 2017
  8. PHLOROGLUCINOL [Suspect]
     Active Substance: PHLOROGLUCINOL
     Dosage: 6 DOSAGE FORM, QD
     Route: 048
     Dates: start: 2017
  9. PHLOROGLUCINOL [Suspect]
     Active Substance: PHLOROGLUCINOL
     Dosage: 15 DOSAGE FORM, QD
     Route: 048
     Dates: start: 2017
  10. KEPPRA [Suspect]
     Active Substance: LEVETIRACETAM
     Indication: Epilepsy
     Dosage: 1000 MILLIGRAM, QD
     Route: 048
     Dates: start: 20170422
  11. URAPIDIL HYDROCHLORIDE [Suspect]
     Active Substance: URAPIDIL HYDROCHLORIDE
     Indication: Hypertension
     Dosage: 2 MILLIGRAM, QH
     Route: 042
     Dates: start: 201703, end: 20170330
  12. URAPIDIL HYDROCHLORIDE [Suspect]
     Active Substance: URAPIDIL HYDROCHLORIDE
     Dosage: 40 MILLIGRAM, QD
     Route: 042
     Dates: end: 20170330
  13. ALGINIC ACID\SODIUM BICARBONATE [Suspect]
     Active Substance: ALGINIC ACID\SODIUM BICARBONATE
     Indication: Gastrooesophageal reflux disease
     Dosage: 1 DF, TID, PRN
     Route: 048
     Dates: start: 2017, end: 2017
  14. URSODIOL [Suspect]
     Active Substance: URSODIOL
     Indication: Product used for unknown indication
     Dosage: 200 MILLIGRAM
     Route: 048
     Dates: start: 20170331
  15. GANCICLOVIR [Suspect]
     Active Substance: GANCICLOVIR
     Indication: Prophylaxis
     Dosage: UNK
     Route: 042
     Dates: start: 20170330, end: 20170504
  16. BACTRIM [Suspect]
     Active Substance: SULFAMETHOXAZOLE\TRIMETHOPRIM
     Indication: Pneumocystis jirovecii pneumonia
     Dosage: 800 MILLIGRAM, QD
     Route: 048
     Dates: start: 201703, end: 20170526
  17. MAGNESIUM ALGINATE [Suspect]
     Active Substance: MAGNESIUM ALGINATE
     Indication: Gastrooesophageal reflux disease
     Dosage: 1 DOSAGE FORM, Q8H ((ALSO REPORTED AS TID)
     Route: 048
     Dates: start: 2017
  18. SODIUM ALGINATE [Suspect]
     Active Substance: SODIUM ALGINATE
     Indication: Gastrooesophageal reflux disease
     Dosage: 1 DOSAGE FORM, Q8H (ALSO REPORTED AS: 3 DOSAGE FORM, QD)
     Route: 048
     Dates: start: 2017
  19. HYDROCORTISONE [Suspect]
     Active Substance: HYDROCORTISONE
     Indication: Product used for unknown indication
     Dosage: UNK
     Route: 065
  20. NEORAL [Suspect]
     Active Substance: CYCLOSPORINE
     Indication: Prophylaxis against transplant rejection
     Dosage: 80 MILLIGRAM, QD
     Route: 048
     Dates: start: 2017, end: 2017
  21. ACETAMINOPHEN [Suspect]
     Active Substance: ACETAMINOPHEN
     Indication: Pain
     Dosage: 1 GRAM, QD
     Route: 048
     Dates: start: 2017, end: 2017
  22. ACETAMINOPHEN [Suspect]
     Active Substance: ACETAMINOPHEN
     Indication: Pyrexia
     Dosage: 3 GRAM, 1X/DAY (IF PAIN OR FEVER)
     Route: 048
     Dates: start: 2017, end: 2017
  23. AMINO ACIDS\DEXTROSE\ELECTROLYTES NOS\SOYBEAN OIL [Suspect]
     Active Substance: AMINO ACIDS\DEXTROSE\ELECTROLYTES NOS\SOYBEAN OIL
     Indication: Parenteral nutrition
     Dosage: 80 ML, QH; FORMULATION: EMULSION FOR INFUSION
     Route: 042
     Dates: start: 2017, end: 2017
  24. AMIKACIN [Suspect]
     Active Substance: AMIKACIN
     Indication: Product used for unknown indication
     Dosage: UNK
     Route: 042
     Dates: end: 20170610
  25. AMIKACIN [Suspect]
     Active Substance: AMIKACIN
     Indication: Pain
     Dosage: 20 MG, 4X/DAY
     Route: 042
     Dates: start: 2017, end: 20170610
  26. AMIKACIN [Suspect]
     Active Substance: AMIKACIN
     Dosage: UNK
     Route: 042
     Dates: start: 20170403, end: 20170408
  27. AMIKACIN [Suspect]
     Active Substance: AMIKACIN
     Dosage: UNK
     Route: 042
     Dates: start: 20170421, end: 20170424
  28. AMIKACIN [Suspect]
     Active Substance: AMIKACIN
     Dosage: 80 MILLIGRAM, QD
     Route: 042
     Dates: start: 20170526, end: 20170529
  29. AMIKACIN [Suspect]
     Active Substance: AMIKACIN
     Dosage: UNK
     Route: 042
     Dates: start: 20170607, end: 20170610
  30. AMIKACIN [Suspect]
     Active Substance: AMIKACIN
     Dosage: UNK
     Route: 042
     Dates: start: 20170610
  31. EUPANTOL [Suspect]
     Active Substance: PANTOPRAZOLE SODIUM
     Indication: Gastrooesophageal reflux disease
     Dosage: 40 MG, QD
     Route: 042
     Dates: start: 2017, end: 2017
  32. EUPANTOL [Suspect]
     Active Substance: PANTOPRAZOLE SODIUM
     Dosage: 600 MILLIGRAM, Q12H; FORMULATION: COATED TABLET
     Route: 042
     Dates: end: 20170430
  33. EUPANTOL [Suspect]
     Active Substance: PANTOPRAZOLE SODIUM
     Dosage: 40 MILLIGRAM, QD; FORMULATION: COATED TABLET
     Route: 042
  34. LINEZOLID [Suspect]
     Active Substance: LINEZOLID
     Indication: Product used for unknown indication
     Dosage: 600 MILLIGRAM, BID
     Route: 042
     Dates: start: 201703, end: 20170430
  35. RACECADOTRIL [Suspect]
     Active Substance: RACECADOTRIL
     Indication: Diarrhoea
     Dosage: 200 MILLIGRAM, TID
     Route: 048
     Dates: start: 2017, end: 2017
  36. ACUPAN [Suspect]
     Active Substance: NEFOPAM HYDROCHLORIDE
     Indication: Pain
     Dosage: 20 MILLIGRAM, Q6H
     Route: 042
     Dates: start: 2017, end: 2017
  37. POTASSIUM BICARBONATE\SODIUM ALGINATE [Suspect]
     Active Substance: POTASSIUM BICARBONATE\SODIUM ALGINATE
     Indication: Gastrooesophageal reflux disease
     Dosage: UNK UNK, TID
     Route: 048
     Dates: start: 2017
  38. SOLU-MEDROL [Suspect]
     Active Substance: METHYLPREDNISOLONE SODIUM SUCCINATE
     Indication: Product used for unknown indication
     Dosage: 160 MILLIGRAM, QD
     Route: 042
     Dates: start: 2017, end: 20170609
  39. DITROPAN [Suspect]
     Active Substance: OXYBUTYNIN CHLORIDE
     Indication: Product used for unknown indication
     Dosage: 5 MILLIGRAM, TID
     Route: 048
     Dates: start: 2017, end: 20170509
  40. SOLU-MEDROL [Suspect]
     Active Substance: METHYLPREDNISOLONE SODIUM SUCCINATE
     Indication: Product used for unknown indication
     Dosage: 160 MG, QD
     Route: 042
     Dates: start: 2017
  41. VALACYCLOVIR HYDROCHLORIDE [Suspect]
     Active Substance: VALACYCLOVIR HYDROCHLORIDE
     Indication: Prophylaxis
     Dosage: UNK
     Route: 048
     Dates: start: 20170504
  42. RAMIPRIL [Concomitant]
     Active Substance: RAMIPRIL
     Indication: Prophylaxis against transplant rejection
     Dosage: 2000 MILLIGRAM, QD
     Route: 048
     Dates: start: 20170331
  43. BISOPROLOL [Concomitant]
     Active Substance: BISOPROLOL
     Indication: Prophylaxis
     Dosage: UNK
     Route: 048
     Dates: start: 20170531
  44. CELLCEPT [Concomitant]
     Active Substance: MYCOPHENOLATE MOFETIL
     Indication: Prophylaxis against transplant rejection
     Dosage: 2000 MILLIGRAM, 1X/DAY
     Dates: start: 2017
  45. TARGOCID [Concomitant]
     Active Substance: TEICOPLANIN
     Indication: Product used for unknown indication
     Dosage: UNK
     Dates: start: 20170524, end: 20170529
  46. ATOVAQUONE [Concomitant]
     Active Substance: ATOVAQUONE
     Dosage: UNK
     Dates: start: 20170526
  47. AMLODIPINE BESYLATE [Concomitant]
     Active Substance: AMLODIPINE BESYLATE
     Indication: Epilepsy
     Dosage: 1000 MILLIGRAM, QD
     Route: 048
     Dates: start: 20170526
  48. URAPIDIL [Concomitant]
     Active Substance: URAPIDIL
  49. VANCOMYCIN [Concomitant]
     Active Substance: VANCOMYCIN
     Indication: Product used for unknown indication
     Dosage: UNK
     Dates: start: 20170529
  50. HYDROCORTISONE [Concomitant]
     Active Substance: HYDROCORTISONE

REACTIONS (6)
  - Drug interaction [Unknown]
  - Confusional state [Recovering/Resolving]
  - Pancytopenia [Recovered/Resolved]
  - Amnesia [Recovering/Resolving]
  - Cellulitis [Unknown]
  - Pneumocystis jirovecii pneumonia [Unknown]

NARRATIVE: CASE EVENT DATE: 20170329
